FAERS Safety Report 21662487 (Version 8)
Quarter: 2023Q4

REPORT INFORMATION
  Report Type: Spontaneous
  Country: IN (occurrence: IN)
  Receive Date: 20221130
  Receipt Date: 20231130
  Transmission Date: 20240110
  Serious: Yes (Other)
  Sender: FDA-Public Use
  Company Number: IN-PFIZER INC-PV202200097883

PATIENT
  Age: 78 Year
  Sex: Female
  Weight: 49.4 kg

DRUGS (4)
  1. DACOMITINIB [Suspect]
     Active Substance: DACOMITINIB
     Indication: Lung cancer metastatic
     Dosage: 30 MG, 1X/DAY
     Route: 048
     Dates: start: 20221028
  2. DACOMITINIB [Suspect]
     Active Substance: DACOMITINIB
     Dosage: 30 MG, 1X/DAY
  3. DOXYCYCLINE [Concomitant]
     Active Substance: DOXYCYCLINE
     Dosage: 100 MG, 1X/DAY
     Dates: start: 20221027
  4. MEGASTY [Concomitant]
     Dosage: 160 MG, 1X/DAY

REACTIONS (7)
  - Blood pressure increased [Unknown]
  - Rash [Unknown]
  - Blood bilirubin unconjugated increased [Unknown]
  - Aspartate aminotransferase abnormal [Unknown]
  - Globulin abnormal [Unknown]
  - Decreased appetite [Unknown]
  - Paronychia [Unknown]

NARRATIVE: CASE EVENT DATE: 20221123
